FAERS Safety Report 9160097 (Version 1)
Quarter: 2013Q1

REPORT INFORMATION
  Report Type: Spontaneous
  Country: US (occurrence: None)
  Receive Date: 20130220
  Receipt Date: 20130220
  Transmission Date: 20140127
  Serious: Yes (Other)
  Sender: FDA-Public Use
  Company Number: 1109-223

PATIENT
  Age: 84 Year
  Sex: Female
  Weight: 100.7 kg

DRUGS (10)
  1. VEGF-TRAP [Suspect]
     Dosage: INTRAVITREAL
  2. POVIDONE IODINE [Suspect]
  3. AVAPRO (IRBESARTAN) [Concomitant]
  4. NITROGLYCERIN (GLYCERYL TRINITRATE) [Concomitant]
  5. NITROQUICK (GLYCERYL TRINITRATE) [Concomitant]
  6. TOPROL XL (METOPROLOL SUCCINATE) [Concomitant]
  7. VITAMIN B12 (CYANOCOBALAMIN) [Concomitant]
  8. ZOCOR (SIMVASTATIN) [Concomitant]
  9. PLAVIX (CLOPIDOGREL) [Concomitant]
  10. ASPIRIN (ACETYLSALICYLIC ACID) [Concomitant]

REACTIONS (2)
  - Corneal abrasion [None]
  - Age-related macular degeneration [None]
